FAERS Safety Report 24829632 (Version 1)
Quarter: 2025Q1

REPORT INFORMATION
  Report Type: Spontaneous
  Country: SE (occurrence: SE)
  Receive Date: 20250110
  Receipt Date: 20250110
  Transmission Date: 20250409
  Serious: Yes (Other)
  Sender: ABBVIE
  Company Number: None

PATIENT
  Age: 29 Year
  Sex: Female

DRUGS (1)
  1. ESCITALOPRAM OXALATE [Suspect]
     Active Substance: ESCITALOPRAM OXALATE
     Indication: Premenstrual syndrome
     Dosage: 1 TABLET PER DAY INTERMITTENT TREATMENT FOR A MAXIMUM OF 14 DAYS
     Route: 048
     Dates: start: 20240927

REACTIONS (5)
  - Radius fracture [Recovering/Resolving]
  - Product use in unapproved indication [Unknown]
  - Slow response to stimuli [Recovering/Resolving]
  - Fall [Recovering/Resolving]
  - Injury [Recovering/Resolving]

NARRATIVE: CASE EVENT DATE: 20241106
